FAERS Safety Report 7740198-0 (Version None)
Quarter: 2011Q3

REPORT INFORMATION
  Report Type: 
  Country: None (occurrence: None)
  Receive Date: 20110909
  Receipt Date: 20110909
  Transmission Date: 20111222
  Serious: Yes (Other)
  Sender: FDA-Public Use
  Company Number: None

PATIENT
  Age: 33 Year
  Sex: Male
  Weight: 83.914 kg

DRUGS (1)
  1. CYMBALTA [Suspect]
     Indication: PAIN
     Dosage: 60
     Route: 048
     Dates: start: 20110109, end: 20110801

REACTIONS (3)
  - DRUG EFFECT DECREASED [None]
  - DIZZINESS [None]
  - WEIGHT INCREASED [None]
